FAERS Safety Report 7517995-X (Version None)
Quarter: 2011Q2

REPORT INFORMATION
  Report Type: 
  Country: None (occurrence: None)
  Receive Date: 20110602
  Receipt Date: 20110524
  Transmission Date: 20111010
  Serious: Yes (Life-Threatening, Hospitalization)
  Sender: FDA-Public Use
  Company Number: FR-JNJFOC-20110303326

PATIENT
  Sex: Male
  Weight: 49 kg

DRUGS (17)
  1. PREZISTA [Suspect]
     Indication: HIV INFECTION
     Route: 048
     Dates: start: 20101213, end: 20110222
  2. ISENTRESS [Suspect]
     Indication: HIV INFECTION
     Route: 065
     Dates: start: 20101213, end: 20110222
  3. CALCIUM GLUCONATE [Concomitant]
  4. PREDNISONE [Concomitant]
  5. NACL +KCL [Concomitant]
  6. FORTIMEL [Concomitant]
  7. NEURONTIN [Concomitant]
  8. FOSCAVIR [Concomitant]
  9. POTASSIUM CHLORIDE [Concomitant]
     Route: 048
  10. NEXIUM [Concomitant]
  11. FUNGIZONE [Concomitant]
  12. NORVIR [Concomitant]
     Indication: HIV INFECTION
     Dates: start: 20101213
  13. FENOFIBRATE [Concomitant]
     Indication: PRODUCT USED FOR UNKNOWN INDICATION
  14. DUPHALAC [Concomitant]
  15. DEXERYL [Concomitant]
  16. VITABACT [Concomitant]
  17. CELLUVISC [Concomitant]

REACTIONS (3)
  - SEPSIS [None]
  - CYTOLYTIC HEPATITIS [None]
  - DRUG RASH WITH EOSINOPHILIA AND SYSTEMIC SYMPTOMS [None]
